FAERS Safety Report 14549506 (Version 1)
Quarter: 2018Q1

REPORT INFORMATION
  Report Type: Spontaneous
  Country: GB (occurrence: GB)
  Receive Date: 20180219
  Receipt Date: 20180219
  Transmission Date: 20180509
  Serious: Yes (Life-Threatening)
  Sender: FDA-Public Use
  Company Number: GB-TEVA-2018-GB-857880

PATIENT
  Age: 45 Year
  Sex: Female
  Weight: 141 kg

DRUGS (9)
  1. CERELLE [Concomitant]
     Active Substance: DESOGESTREL
     Dosage: 1 DOSAGE FORMS DAILY;
     Dates: start: 20171212
  2. OMEPRAZOLE. [Concomitant]
     Active Substance: OMEPRAZOLE
     Dosage: 1 DOSAGE FORMS DAILY;
     Dates: start: 20171212
  3. NAPROXEN. [Concomitant]
     Active Substance: NAPROXEN
     Dosage: 2 DOSAGE FORMS DAILY;
     Dates: start: 20171212
  4. MOMETASONE [Concomitant]
     Active Substance: MOMETASONE
     Dosage: 2 DOSAGE FORMS DAILY; SPRAYS
     Dates: start: 20170823
  5. TETRACYCLINE [Suspect]
     Active Substance: TETRACYCLINE
     Route: 065
     Dates: start: 20171220
  6. PREDNISOLONE. [Concomitant]
     Active Substance: PREDNISOLONE
     Dosage: 50 MILLIGRAM DAILY;
     Dates: start: 20171218
  7. DERMOL [Concomitant]
     Active Substance: BENZALKONIUM CHLORIDE\CHLORHEXIDINE HYDROCHLORIDE\ISOPROPYL MYRISTATE\PARAFFIN
     Dosage: AS SOAP SUBSTITUTE
     Dates: start: 20170823
  8. DOUBLEBASE [Concomitant]
     Active Substance: ISOPROPYL MYRISTATE\PARAFFIN
     Dosage: AS DIRECTED
     Dates: start: 20170823
  9. HYPROMELLOSE [Concomitant]
     Active Substance: HYPROMELLOSES
     Indication: DRY EYE
     Route: 047
     Dates: start: 20171218

REACTIONS (2)
  - Dyspnoea [Unknown]
  - Swelling face [Recovered/Resolved]

NARRATIVE: CASE EVENT DATE: 20171220
